FAERS Safety Report 5268042-4 (Version None)
Quarter: 2007Q1

REPORT INFORMATION
  Report Type: 
  Country: None (occurrence: None)
  Receive Date: 20070316
  Receipt Date: 20070316
  Transmission Date: 20070707
  Serious: Yes (Life-Threatening, Hospitalization)
  Sender: FDA-Public Use
  Company Number: None

PATIENT
  Sex: Male
  Weight: 69.6 kg

DRUGS (3)
  1. NAPROXEN [Suspect]
     Indication: GOUT
     Dosage: 500 MG BLD PR (PO)
     Route: 048
     Dates: start: 20050812, end: 20060722
  2. DIAZEPAM [Concomitant]
  3. VICODIN [Concomitant]

REACTIONS (2)
  - GASTRIC ULCER HAEMORRHAGE [None]
  - RENAL FAILURE ACUTE [None]
